FAERS Safety Report 7377776-7 (Version None)
Quarter: 2011Q1

REPORT INFORMATION
  Report Type: 
  Country: None (occurrence: None)
  Receive Date: 20110328
  Receipt Date: 20110322
  Transmission Date: 20110831
  Serious: Yes (Hospitalization, Other)
  Sender: FDA-Public Use
  Company Number: US-ROCHE-527498

PATIENT
  Sex: Female
  Weight: 78.9 kg

DRUGS (3)
  1. DESQUAM-X [Concomitant]
  2. AMOXICILLIN [Concomitant]
  3. ACCUTANE [Suspect]
     Route: 048
     Dates: start: 19970727, end: 19971225

REACTIONS (17)
  - NASAL DISCOMFORT [None]
  - DEHYDRATION [None]
  - INFLAMMATORY BOWEL DISEASE [None]
  - COLITIS ULCERATIVE [None]
  - GASTROINTESTINAL DISORDER [None]
  - ENTEROCOLITIS [None]
  - COLONIC POLYP [None]
  - LEIOMYOMA [None]
  - HEADACHE [None]
  - UTERINE HAEMORRHAGE [None]
  - HYPERTENSION [None]
  - DIVERTICULUM INTESTINAL [None]
  - PELVIC PAIN [None]
  - NASAL DRYNESS [None]
  - COLITIS [None]
  - DIVERTICULITIS [None]
  - ABSCESS [None]
